FAERS Safety Report 4962252-9 (Version None)
Quarter: 2006Q1

REPORT INFORMATION
  Report Type: 
  Country: None (occurrence: None)
  Receive Date: 20060331
  Receipt Date: 20060315
  Transmission Date: 20060701
  Serious: Yes (Hospitalization)
  Sender: FDA-Public Use
  Company Number: US200603004885

PATIENT
  Age: 49 Year
  Sex: Male

DRUGS (3)
  1. FORTEO [Suspect]
     Indication: OSTEOPOROSIS
     Dosage: SEE IMAGE
     Dates: start: 20050506, end: 20050101
  2. FORTEO [Suspect]
     Indication: OSTEOPOROSIS
     Dosage: SEE IMAGE
     Dates: start: 20060101
  3. FORTEO [Concomitant]

REACTIONS (6)
  - ABDOMINAL NEOPLASM [None]
  - BACK PAIN [None]
  - BENIGN NEOPLASM [None]
  - CATHETER RELATED COMPLICATION [None]
  - NERVE INJURY [None]
  - PHARMACEUTICAL PRODUCT COMPLAINT [None]
